FAERS Safety Report 17807233 (Version 1)
Quarter: 2020Q2

REPORT INFORMATION
  Report Type: Spontaneous
  Country: US (occurrence: US)
  Receive Date: 20200520
  Receipt Date: 20200520
  Transmission Date: 20200714
  Serious: No
  Sender: FDA-Public Use
  Company Number: US-GLAXOSMITHKLINE-US2020083379

PATIENT
  Sex: Female

DRUGS (1)
  1. NUCALA [Suspect]
     Active Substance: MEPOLIZUMAB
     Indication: HYPERSENSITIVITY
     Dosage: 100 MG
     Route: 058

REACTIONS (5)
  - Product use in unapproved indication [Unknown]
  - Cough [Not Recovered/Not Resolved]
  - Drug ineffective [Not Recovered/Not Resolved]
  - Sinus operation [Not Recovered/Not Resolved]
  - Anal incontinence [Not Recovered/Not Resolved]
